FAERS Safety Report 8113476-3 (Version None)
Quarter: 2012Q1

REPORT INFORMATION
  Report Type: 
  Country: None (occurrence: None)
  Receive Date: 20120203
  Receipt Date: 20120127
  Transmission Date: 20120608
  Serious: Yes (Other)
  Sender: FDA-Public Use
  Company Number: US-CELGENEUS-163-21880-12013090

PATIENT
  Sex: Male
  Weight: 70.824 kg

DRUGS (9)
  1. AREDIA [Concomitant]
     Route: 065
  2. REVLIMID [Suspect]
     Indication: MULTIPLE MYELOMA
     Dosage: 15 MILLIGRAM
     Route: 048
     Dates: start: 20070903
  3. REVLIMID [Suspect]
     Route: 048
     Dates: start: 20081101
  4. PERCOCET [Concomitant]
     Route: 065
  5. PRILOSEC [Concomitant]
     Route: 065
  6. VITAMIN B-12 [Concomitant]
     Route: 065
  7. MORPHINE [Concomitant]
     Route: 065
  8. PROMETHAZINE [Concomitant]
     Route: 065
  9. GABAPENTIN [Concomitant]
     Route: 065

REACTIONS (1)
  - OSTEONECROSIS OF JAW [None]
